FAERS Safety Report 25557055 (Version 1)
Quarter: 2025Q3

REPORT INFORMATION
  Report Type: Report from Study
  Country: US (occurrence: US)
  Receive Date: 20250715
  Receipt Date: 20250715
  Transmission Date: 20251021
  Serious: Yes (Other)
  Sender: MYLAN
  Company Number: US-MYLANLABS-2025M1059348

PATIENT
  Sex: Male

DRUGS (4)
  1. DILANTIN [Suspect]
     Active Substance: PHENYTOIN
     Indication: Seizure
  2. DILANTIN [Suspect]
     Active Substance: PHENYTOIN
     Indication: Epilepsy
     Route: 065
  3. DILANTIN [Suspect]
     Active Substance: PHENYTOIN
     Route: 065
  4. DILANTIN [Suspect]
     Active Substance: PHENYTOIN

REACTIONS (1)
  - Drug dependence [Unknown]
